FAERS Safety Report 10390749 (Version 1)
Quarter: 2014Q3

REPORT INFORMATION
  Report Type: Spontaneous
  Country: IN (occurrence: None)
  Receive Date: 20140814
  Receipt Date: 20140814
  Transmission Date: 20150326
  Serious: Yes (Hospitalization)
  Sender: FDA-Public Use
  Company Number: IPC201407-000404

PATIENT
  Age: 19 Year
  Sex: Male

DRUGS (11)
  1. CLONAZEPAM. [Suspect]
     Active Substance: CLONAZEPAM
     Indication: DELUSION
  2. VALPROATE [Suspect]
     Active Substance: VALPROIC ACID
     Indication: HALLUCINATION
  3. OLANZAPINE (OLANZAPINE) [Suspect]
     Active Substance: OLANZAPINE
     Indication: DELUSION
  4. CLONAZEPAM. [Suspect]
     Active Substance: CLONAZEPAM
     Indication: HALLUCINATION
  5. ONDANSETRON. [Suspect]
     Active Substance: ONDANSETRON
  6. VALPROATE [Suspect]
     Active Substance: VALPROIC ACID
     Indication: DELUSION
  7. LITHIUM [Suspect]
     Active Substance: LITHIUM CARBONATE
     Indication: DELUSION
  8. RISPERIDONE (RISPERIDONE) [Suspect]
     Active Substance: RISPERIDONE
     Indication: HALLUCINATION
  9. OLANZAPINE (OLANZAPINE) [Suspect]
     Active Substance: OLANZAPINE
     Indication: HALLUCINATION
  10. RISPERIDONE (RISPERIDONE) [Suspect]
     Active Substance: RISPERIDONE
     Indication: DELUSION
  11. LITHIUM [Suspect]
     Active Substance: LITHIUM CARBONATE
     Indication: HALLUCINATION

REACTIONS (2)
  - Neuroleptic malignant syndrome [None]
  - Serotonin syndrome [None]
